FAERS Safety Report 11119313 (Version 1)
Quarter: 2015Q2

REPORT INFORMATION
  Report Type: Spontaneous
  Country: GB (occurrence: GB)
  Receive Date: 20150518
  Receipt Date: 20150518
  Transmission Date: 20150821
  Serious: Yes (Other)
  Sender: FDA-Public Use
  Company Number: GB-TEVA-561878ACC

PATIENT
  Age: 82 Year
  Sex: Male

DRUGS (12)
  1. LERCANIDIPINE [Concomitant]
     Active Substance: LERCANIDIPINE
  2. SIMVASTATIN. [Concomitant]
     Active Substance: SIMVASTATIN
  3. IPRATROPIUM [Concomitant]
     Active Substance: IPRATROPIUM
  4. IRBESARTAN. [Concomitant]
     Active Substance: IRBESARTAN
  5. LANSOPRAZOLE. [Concomitant]
     Active Substance: LANSOPRAZOLE
  6. PARACETAMOL [Concomitant]
     Active Substance: ACETAMINOPHEN
  7. CLOPIDOGREL [Concomitant]
     Active Substance: CLOPIDOGREL BISULFATE
  8. VITAMIN B COMPLEX STRONG [Concomitant]
  9. SYMBICORT [Concomitant]
     Active Substance: BUDESONIDE\FORMOTEROL FUMARATE DIHYDRATE
  10. LEVOFLOXACIN. [Suspect]
     Active Substance: LEVOFLOXACIN
     Indication: INFECTION
     Dosage: 1000 MILLIGRAM DAILY;
     Route: 042
     Dates: start: 20150417, end: 20150424
  11. FOLIC ACID. [Concomitant]
     Active Substance: FOLIC ACID
  12. THIAMINE [Concomitant]
     Active Substance: THIAMINE

REACTIONS (9)
  - Dyspnoea [Recovered/Resolved]
  - Wheezing [Recovered/Resolved]
  - Haemoglobin decreased [Recovering/Resolving]
  - Seizure [Recovered/Resolved]
  - Postictal state [Recovered/Resolved]
  - Pupil fixed [Recovered/Resolved]
  - Dyskinesia [Recovered/Resolved]
  - Urinary tract infection [Unknown]
  - Tachycardia [Recovered/Resolved]

NARRATIVE: CASE EVENT DATE: 20150419
